FAERS Safety Report 8028009-X (Version None)
Quarter: 2012Q1

REPORT INFORMATION
  Report Type: 
  Country: None (occurrence: None)
  Receive Date: 20120106
  Receipt Date: 20110726
  Transmission Date: 20120608
  Serious: No
  Sender: FDA-Public Use
  Company Number: US-MYLANLABS-2011S1015557

PATIENT
  Age: 50 Year
  Sex: Male
  Weight: 91 kg

DRUGS (14)
  1. PHENYTOIN SODIUM CAP [Suspect]
     Indication: PARTIAL SEIZURES
     Route: 048
     Dates: start: 20110720, end: 20110720
  2. FOSPHENYTOIN [Suspect]
     Indication: PARTIAL SEIZURES
     Route: 040
     Dates: start: 20110720, end: 20110720
  3. VITAMIN C [Concomitant]
     Route: 048
     Dates: start: 20110715
  4. PHENYTOIN SODIUM CAP [Suspect]
     Route: 048
     Dates: start: 20110725, end: 20110725
  5. DILANTIN [Suspect]
     Route: 042
     Dates: end: 20110720
  6. COLACE [Concomitant]
     Route: 048
     Dates: start: 20110715
  7. M.V.I. [Concomitant]
     Route: 048
     Dates: start: 20110715
  8. VITAMIN D [Concomitant]
     Route: 048
     Dates: start: 20110715
  9. PHENYTOIN SODIUM CAP [Suspect]
     Route: 048
     Dates: start: 20110721, end: 20110726
  10. DECADRON [Concomitant]
     Route: 048
     Dates: start: 20110715
  11. DILANTIN [Suspect]
     Indication: PARTIAL SEIZURES
     Route: 042
     Dates: start: 20110715
  12. DILANTIN [Suspect]
     Route: 042
  13. PEPCID [Concomitant]
     Route: 048
     Dates: start: 20110717
  14. DECADRON [Concomitant]
     Route: 048
     Dates: start: 20110721

REACTIONS (1)
  - DRUG LEVEL BELOW THERAPEUTIC [None]
